FAERS Safety Report 5341683-1 (Version None)
Quarter: 2007Q2

REPORT INFORMATION
  Report Type: 
  Country: None (occurrence: None)
  Receive Date: 20070530
  Receipt Date: 20070518
  Transmission Date: 20071010
  Serious: Yes (Hospitalization)
  Sender: FDA-Public Use
  Company Number: 2007AL002028

PATIENT
  Age: 93 Year
  Sex: Female

DRUGS (5)
  1. DIGOXIN [Suspect]
     Dosage: 125 UG; QD; PO
     Route: 048
  2. RAMIPRIL [Concomitant]
  3. LEVOTHYROXINE SODIUM [Concomitant]
  4. ANTI-DIABETES MEDICATIONS (NOS) [Concomitant]
  5. ANTI-COAGULANT MEDICATIONS (NOS) [Concomitant]

REACTIONS (3)
  - ABNORMAL BEHAVIOUR [None]
  - HYPERSOMNIA [None]
  - THERAPEUTIC AGENT TOXICITY [None]
